FAERS Safety Report 10096083 (Version 1)
Quarter: 2014Q2

REPORT INFORMATION
  Report Type: Spontaneous
  Country: US (occurrence: US)
  Receive Date: 20140422
  Receipt Date: 20140422
  Transmission Date: 20141212
  Serious: Yes (Hospitalization)
  Sender: FDA-Public Use
  Company Number: US-BAYER-2014-056504

PATIENT
  Age: 38 Year
  Sex: Female

DRUGS (6)
  1. YASMIN [Suspect]
  2. EXCEDRIN [CAFFEINE,PARACETAMOL] [Concomitant]
  3. IMITREX [Concomitant]
  4. MAXALT [Concomitant]
  5. REMERON [Concomitant]
  6. DEPAKOTE [Concomitant]

REACTIONS (2)
  - Cerebrovascular accident [None]
  - Lacunar infarction [None]
